FAERS Safety Report 23271998 (Version 6)
Quarter: 2025Q4

REPORT INFORMATION
  Report Type: Spontaneous
  Country: US (occurrence: US)
  Receive Date: 20231207
  Receipt Date: 20251218
  Transmission Date: 20260118
  Serious: No
  Sender: BIOMARIN
  Company Number: US-SA-SAC20231124000139

PATIENT
  Age: 12 Year
  Sex: Female

DRUGS (2)
  1. ALDURAZYME [Suspect]
     Active Substance: LARONIDASE
     Indication: Product used for unknown indication
     Dosage: 17.4 MG, QW
  2. ALDURAZYME [Suspect]
     Active Substance: LARONIDASE
     Dosage: 23.2 MG, QW

REACTIONS (4)
  - Malaise [Unknown]
  - Influenza [Unknown]
  - Illness [Unknown]
  - Wisdom teeth removal [Unknown]

NARRATIVE: CASE EVENT DATE: 20231121
